FAERS Safety Report 10217511 (Version 1)
Quarter: 2014Q2

REPORT INFORMATION
  Report Type: Spontaneous
  Country: US (occurrence: US)
  Receive Date: 20140604
  Receipt Date: 20140604
  Transmission Date: 20141212
  Serious: Yes (Other)
  Sender: FDA-Public Use
  Company Number: US-ABBVIE-14P-163-1242358-00

PATIENT
  Sex: Male

DRUGS (2)
  1. ANDROGEL [Suspect]
     Indication: HYPOGONADISM
     Dates: start: 201202, end: 201301
  2. ANDROGEL [Suspect]
     Indication: BLOOD TESTOSTERONE DECREASED

REACTIONS (6)
  - Cerebrovascular accident [Unknown]
  - Physical disability [Unknown]
  - Emotional disorder [Unknown]
  - Loss of employment [Unknown]
  - Emotional distress [Unknown]
  - Emotional distress [Unknown]
